FAERS Safety Report 4415467-2 (Version None)
Quarter: 2004Q2

REPORT INFORMATION
  Report Type: 
  Country: None (occurrence: None)
  Receive Date: 20040630
  Receipt Date: 20031103
  Transmission Date: 20050107
  Serious: Yes (Hospitalization)
  Sender: FDA-Public Use
  Company Number: 2003116253

PATIENT
  Age: 15 Year
  Sex: Female

DRUGS (2)
  1. ZOLOFT [Suspect]
     Indication: DEPRESSION
     Dosage: 25 MG (DAILY), ORAL
     Route: 048
     Dates: end: 20031001
  2. IBUPROFEN [Concomitant]

REACTIONS (2)
  - DEPRESSION [None]
  - DRUG SCREEN POSITIVE [None]
